FAERS Safety Report 6835738-X (Version None)
Quarter: 2010Q3

REPORT INFORMATION
  Report Type: 
  Country: None (occurrence: None)
  Receive Date: 20100713
  Receipt Date: 20100706
  Transmission Date: 20110219
  Serious: Yes (Other)
  Sender: FDA-Public Use
  Company Number: GB-GENZYME-THYM-1001588

PATIENT
  Age: 18 Year
  Sex: Female

DRUGS (2)
  1. THYMOGLOBULIN [Suspect]
     Indication: LIVER TRANSPLANT REJECTION
     Dosage: 1.5 MG/KG, QD
     Route: 042
  2. THYMOGLOBULIN [Suspect]
     Dosage: 7.5 MG/KG, QD
     Route: 042

REACTIONS (2)
  - BRADYCARDIA [None]
  - CHEST PAIN [None]
